FAERS Safety Report 10157901 (Version 3)
Quarter: 2014Q2

REPORT INFORMATION
  Report Type: Spontaneous
  Country: JP (occurrence: JP)
  Receive Date: 20140507
  Receipt Date: 20140523
  Transmission Date: 20141212
  Serious: Yes (Other)
  Sender: FDA-Public Use
  Company Number: JP-ELI_LILLY_AND_COMPANY-JP201402007466

PATIENT
  Sex: Female

DRUGS (4)
  1. ALIMTA [Suspect]
     Indication: LUNG NEOPLASM MALIGNANT
     Route: 042
  2. DEXAMETHASONE [Concomitant]
     Dosage: 9.9 MG, UNK
     Route: 042
  3. FOLIC ACID [Concomitant]
     Route: 065
  4. VITAMIN B12 [Concomitant]
     Route: 065

REACTIONS (2)
  - Superior vena cava syndrome [Recovering/Resolving]
  - Radiation pneumonitis [Not Recovered/Not Resolved]
